FAERS Safety Report 16849137 (Version 1)
Quarter: 2019Q4

REPORT INFORMATION
  Report Type: Spontaneous
  Country: US (occurrence: US)
  Receive Date: 20190924
  Receipt Date: 20190924
  Transmission Date: 20200122
  Serious: No
  Sender: FDA-Public Use
  Company Number: None

PATIENT
  Age: 84 Year
  Sex: Female
  Weight: 60.3 kg

DRUGS (15)
  1. TYLENOL [Concomitant]
     Active Substance: ACETAMINOPHEN
  2. TORSEMIDE. [Concomitant]
     Active Substance: TORSEMIDE
  3. VITAMIN C [Concomitant]
     Active Substance: ASCORBIC ACID
  4. ALBUTEROL. [Concomitant]
     Active Substance: ALBUTEROL
  5. ONETOUCH GLUCOMETER [Concomitant]
  6. CINNAMOMUM VERUM BARK [Concomitant]
     Active Substance: CINNAMON
  7. MELATONIN [Concomitant]
     Active Substance: MELATONIN
  8. LISINOPRIL. [Suspect]
     Active Substance: LISINOPRIL
     Dosage: ?          QUANTITY:1 TABLET(S);?
     Route: 048
  9. ATORVASTATIN [Suspect]
     Active Substance: ATORVASTATIN
     Indication: BLOOD CHOLESTEROL
     Dosage: ?          QUANTITY:1 TABLET(S);?
     Route: 048
  10. METOPROLOL. [Concomitant]
     Active Substance: METOPROLOL
  11. AMOXICILLIN. [Concomitant]
     Active Substance: AMOXICILLIN
  12. WARFARIN [Concomitant]
     Active Substance: WARFARIN
  13. NITROGLYCERIN. [Concomitant]
     Active Substance: NITROGLYCERIN
  14. FERROUS SULFATE. [Concomitant]
     Active Substance: FERROUS SULFATE
  15. CALCIUM WITH VITAMIN D3 [Concomitant]
     Active Substance: CALCIUM CARBONATE\CHOLECALCIFEROL

REACTIONS (6)
  - Arthralgia [None]
  - Vision blurred [None]
  - Cough [None]
  - Pollakiuria [None]
  - Asthenia [None]
  - Myalgia [None]

NARRATIVE: CASE EVENT DATE: 20190301
